FAERS Safety Report 13066846 (Version 1)
Quarter: 2016Q4

REPORT INFORMATION
  Report Type: Spontaneous
  Country: US (occurrence: US)
  Receive Date: 20161227
  Receipt Date: 20161227
  Transmission Date: 20170207
  Serious: No
  Sender: FDA-Public Use
  Company Number: US-ASTRAZENECA-2016SF32984

PATIENT
  Age: 22203 Day
  Sex: Female
  Weight: 127.5 kg

DRUGS (1)
  1. BYDUREON [Suspect]
     Active Substance: EXENATIDE
     Indication: TYPE 2 DIABETES MELLITUS
     Route: 058
     Dates: start: 20161128

REACTIONS (4)
  - Injection site pain [Recovered/Resolved]
  - Injection site scar [Not Recovered/Not Resolved]
  - Injection site haemorrhage [Recovered/Resolved]
  - Needle issue [Unknown]

NARRATIVE: CASE EVENT DATE: 20161128
